FAERS Safety Report 5921010-9 (Version None)
Quarter: 2008Q4

REPORT INFORMATION
  Report Type: 
  Country: None (occurrence: None)
  Receive Date: 20081016
  Receipt Date: 20081007
  Transmission Date: 20090506
  Serious: Yes (Life-Threatening)
  Sender: FDA-Public Use
  Company Number: DE-PFIZER INC-2008046260

PATIENT
  Age: 16 Year
  Sex: Female
  Weight: 48 kg

DRUGS (1)
  1. GENOTROPIN [Suspect]
     Indication: HYPOPITUITARISM
     Dosage: DAILY DOSE:1.4MG
     Dates: start: 20020403

REACTIONS (1)
  - EXOSTOSIS [None]
